FAERS Safety Report 14853306 (Version 6)
Quarter: 2020Q2

REPORT INFORMATION
  Report Type: Spontaneous
  Country: CA (occurrence: CA)
  Receive Date: 20180507
  Receipt Date: 20200521
  Transmission Date: 20200713
  Serious: Yes (Other)
  Sender: FDA-Public Use
  Company Number: CA-CELLTRION INC.-2017CA005621

PATIENT

DRUGS (40)
  1. INFLECTRA [Suspect]
     Active Substance: INFLIXIMAB-DYYB
     Dosage: 600MG, EVERY 6 WEEKS
     Route: 042
     Dates: start: 20190715
  2. EFFEXOR [Concomitant]
     Active Substance: VENLAFAXINE HYDROCHLORIDE
     Dosage: 187 MG, DAILY
     Route: 065
     Dates: start: 2015
  3. SEROQUEL XR [Concomitant]
     Active Substance: QUETIAPINE FUMARATE
     Dosage: 150 MG, DAILY (QD)
     Dates: start: 2015
  4. INFLECTRA [Suspect]
     Active Substance: INFLIXIMAB-DYYB
     Indication: CROHN^S DISEASE
     Dosage: 550 MG,  AT 0, 2, 6 WEEKS, THEN EVERY 8 WEEKS
     Route: 042
     Dates: start: 20170428, end: 20170428
  5. INFLECTRA [Suspect]
     Active Substance: INFLIXIMAB-DYYB
     Dosage: 550 MG, AT 0, 2, 6 WEEKS, THEN EVERY 8 WEEKS
     Route: 042
     Dates: start: 20170721
  6. INFLECTRA [Suspect]
     Active Substance: INFLIXIMAB-DYYB
     Dosage: 500 MG, EVERY 8 WEEKS
     Route: 042
     Dates: start: 20180105
  7. INFLECTRA [Suspect]
     Active Substance: INFLIXIMAB-DYYB
     Dosage: 10 MG/KG, EVERY 8 WEEKS
     Route: 042
  8. INFLECTRA [Suspect]
     Active Substance: INFLIXIMAB-DYYB
     Dosage: 600MG, EVERY 6 WEEKS
     Route: 042
     Dates: start: 20191118, end: 20191118
  9. ACETAMINOPHEN. [Concomitant]
     Active Substance: ACETAMINOPHEN
     Dosage: 650 MG, UNK
     Dates: start: 20191118
  10. PANTOLOC [Concomitant]
     Active Substance: PANTOPRAZOLE SODIUM
     Dosage: 40 MG, 2X/DAY
     Route: 065
     Dates: start: 2016
  11. INFLECTRA [Suspect]
     Active Substance: INFLIXIMAB-DYYB
     Dosage: 600 MG, EVERY 6 WEEKS
     Route: 042
     Dates: start: 20190308
  12. INFLECTRA [Suspect]
     Active Substance: INFLIXIMAB-DYYB
     Dosage: 600MG, EVERY 6 WEEKS
     Route: 042
     Dates: start: 20190828
  13. INFLECTRA [Suspect]
     Active Substance: INFLIXIMAB-DYYB
     Dosage: 1200 MG, EVERY 6 WEEKS
     Route: 042
     Dates: start: 20200504
  14. INFLECTRA [Suspect]
     Active Substance: INFLIXIMAB-DYYB
     Dosage: 500 MG, EVERY 8 WEEKS
     Route: 042
     Dates: start: 20170920, end: 20180105
  15. INFLECTRA [Suspect]
     Active Substance: INFLIXIMAB-DYYB
     Dosage: 550 MG, EVERY 8 WEEKS
     Route: 042
     Dates: start: 20180309, end: 20180622
  16. INFLECTRA [Suspect]
     Active Substance: INFLIXIMAB-DYYB
     Dosage: 550MG EVERY 8 WEEKS
     Route: 042
     Dates: start: 20180427
  17. INFLECTRA [Suspect]
     Active Substance: INFLIXIMAB-DYYB
     Dosage: 550 MG, EVERY 8 WEEKS
     Route: 042
     Dates: start: 20180622
  18. INFLECTRA [Suspect]
     Active Substance: INFLIXIMAB-DYYB
     Dosage: 600 MG, EVERY 6 WEEKS
     Route: 042
     Dates: start: 20181101
  19. INFLECTRA [Suspect]
     Active Substance: INFLIXIMAB-DYYB
     Dosage: 600 MG, EVERY 6 WEEKS
     Route: 042
     Dates: start: 20190422
  20. INFLECTRA [Suspect]
     Active Substance: INFLIXIMAB-DYYB
     Dosage: 1200 MG, EVERY 6 WEEKS
     Route: 042
     Dates: start: 20200210
  21. INFLECTRA [Suspect]
     Active Substance: INFLIXIMAB-DYYB
     Dosage: 1200 MG, EVERY 6 WEEKS
     Route: 042
     Dates: start: 20200504
  22. SEROQUEL [Concomitant]
     Active Substance: QUETIAPINE FUMARATE
     Dosage: 150 MG, DAILY (OD)
     Route: 065
     Dates: start: 2015
  23. INFLECTRA [Suspect]
     Active Substance: INFLIXIMAB-DYYB
     Dosage: 600 MG, EVERY 6 WEEKS
     Route: 042
     Dates: start: 20180808, end: 20191118
  24. INFLECTRA [Suspect]
     Active Substance: INFLIXIMAB-DYYB
     Dosage: 600 MG, EVERY 8 WEEKS
     Route: 042
     Dates: start: 20180919
  25. INFLECTRA [Suspect]
     Active Substance: INFLIXIMAB-DYYB
     Dosage: 5 MG/KG, UNK
     Route: 042
  26. CALCIUM CARBONATE. [Concomitant]
     Active Substance: CALCIUM CARBONATE
     Dosage: 500 MG, TWICE A DAY
     Route: 065
     Dates: start: 2016
  27. CODEINE [Concomitant]
     Active Substance: CODEINE
     Dosage: 16 MG, 2X/DAY
     Route: 065
     Dates: start: 2015
  28. VITAMIN B [Concomitant]
     Active Substance: VITAMIN B
     Dosage: 2000 IU, DAILY
     Route: 065
     Dates: start: 2016
  29. INFLECTRA [Suspect]
     Active Substance: INFLIXIMAB-DYYB
     Dosage: 550 MG, EVERY 8 WEEKS
     Route: 042
     Dates: start: 20180309, end: 20180622
  30. INFLECTRA [Suspect]
     Active Substance: INFLIXIMAB-DYYB
     Dosage: 600MG, EVERY 6 WEEKS
     Route: 042
     Dates: start: 20190715
  31. INFLECTRA [Suspect]
     Active Substance: INFLIXIMAB-DYYB
     Dosage: 1200 MG, EVERY 6 WEEKS
     Route: 042
     Dates: start: 20191230
  32. INFLECTRA [Suspect]
     Active Substance: INFLIXIMAB-DYYB
     Dosage: 1200 MG, EVERY 6 WEEKS
     Route: 042
     Dates: start: 20191230
  33. SEROQUEL [Concomitant]
     Active Substance: QUETIAPINE FUMARATE
     Dosage: 75 MG, DAILY (AT BEDTIME)
     Route: 065
     Dates: start: 2015
  34. ZOPLICONE [Concomitant]
     Active Substance: ZOPICLONE
     Dosage: 18.75 MG QD (DAILY) HS (AT BEDTIME)
     Route: 065
     Dates: start: 2015
  35. INFLECTRA [Suspect]
     Active Substance: INFLIXIMAB-DYYB
     Dosage: 600MG, EVERY 6 WEEKS
     Route: 042
     Dates: start: 20191007
  36. INFLECTRA [Suspect]
     Active Substance: INFLIXIMAB-DYYB
     Dosage: 550 MG, AT 0, 2, 6 WEEKS, THEN EVERY 8 WEEKS
     Route: 042
     Dates: start: 20170428, end: 20170721
  37. INFLECTRA [Suspect]
     Active Substance: INFLIXIMAB-DYYB
     Dosage: 600 MG, EVERY 6 WEEKS
     Route: 042
     Dates: start: 20181214
  38. INFLECTRA [Suspect]
     Active Substance: INFLIXIMAB-DYYB
     Dosage: 600 MG, EVERY 6 WEEKS
     Route: 042
     Dates: start: 20190125
  39. INFLECTRA [Suspect]
     Active Substance: INFLIXIMAB-DYYB
     Dosage: 600 MG, EVERY 6 WEEKS
     Route: 042
     Dates: start: 20190603
  40. INFLECTRA [Suspect]
     Active Substance: INFLIXIMAB-DYYB
     Dosage: 600MG, EVERY 6 WEEKS
     Route: 042
     Dates: start: 20190828

REACTIONS (21)
  - Feeling abnormal [Not Recovered/Not Resolved]
  - Drug level below therapeutic [Unknown]
  - Abscess [Unknown]
  - Respiratory rate increased [Unknown]
  - Lower respiratory tract infection [Not Recovered/Not Resolved]
  - Off label use [Unknown]
  - Oxygen saturation abnormal [Unknown]
  - Weight increased [Not Recovered/Not Resolved]
  - Body temperature fluctuation [Unknown]
  - Pain [Unknown]
  - Anal fissure [Unknown]
  - Cough [Not Recovered/Not Resolved]
  - Therapeutic product effect incomplete [Not Recovered/Not Resolved]
  - Flatulence [Unknown]
  - Productive cough [Recovering/Resolving]
  - Product prescribing error [Unknown]
  - Insomnia [Not Recovered/Not Resolved]
  - Condition aggravated [Not Recovered/Not Resolved]
  - Nasopharyngitis [Unknown]
  - Incorrect dose administered [Unknown]
  - Malaise [Not Recovered/Not Resolved]

NARRATIVE: CASE EVENT DATE: 2017
